FAERS Safety Report 19727579 (Version 1)
Quarter: 2021Q3

REPORT INFORMATION
  Report Type: Spontaneous
  Country: DE (occurrence: DE)
  Receive Date: 20210820
  Receipt Date: 20210820
  Transmission Date: 20211014
  Serious: Yes (Death, Congenital Anomaly, Other)
  Sender: FDA-Public Use
  Company Number: DE-AUROBINDO-AUR-APL-2014-05898

PATIENT
  Sex: Male
  Weight: .79 kg

DRUGS (5)
  1. FOLSAEURE [Suspect]
     Active Substance: FOLIC ACID
     Indication: PROPHYLAXIS OF NEURAL TUBE DEFECT
     Dosage: 5 MG,DAILY,
     Route: 064
     Dates: start: 20121208, end: 20130529
  2. PENHEXAL [Concomitant]
     Indication: RESPIRATORY TRACT INFECTION
     Dosage: UNK UNK,UNK,
     Route: 064
  3. MIFEGYNE [Concomitant]
     Active Substance: MIFEPRISTONE
     Indication: ABORTION INDUCED
     Dosage: UNK UNK,UNK,
     Route: 064
     Dates: start: 20130529, end: 20130529
  4. CYTOTEC [Concomitant]
     Active Substance: MISOPROSTOL
     Indication: ABORTION INDUCED
     Dosage: UNK UNK,UNK,
     Route: 064
     Dates: start: 20130530, end: 20130530
  5. LAMOTRIGINE AUROBINDO TABLETS 200MG [Suspect]
     Active Substance: LAMOTRIGINE
     Indication: EPILEPSY
     Dosage: 100 MG,TWO TIMES A DAY,
     Route: 064
     Dates: start: 20121208, end: 20130601

REACTIONS (7)
  - Double outlet right ventricle [Fatal]
  - Patent ductus arteriosus [Fatal]
  - Foetal exposure during pregnancy [Recovered/Resolved]
  - Congenital coronary artery malformation [Fatal]
  - Ventricular septal defect [Fatal]
  - Congenital tricuspid valve atresia [Fatal]
  - Congenital pulmonary valve atresia [Fatal]

NARRATIVE: CASE EVENT DATE: 20121208
